FAERS Safety Report 4500195-5 (Version None)
Quarter: 2004Q4

REPORT INFORMATION
  Report Type: 
  Country: None (occurrence: None)
  Receive Date: 20041108
  Receipt Date: 20041025
  Transmission Date: 20050328
  Serious: Yes (Hospitalization)
  Sender: FDA-Public Use
  Company Number: 200410823BCA

PATIENT
  Age: 34 Year
  Sex: Female
  Weight: 80 kg

DRUGS (18)
  1. GAMUNEX [Suspect]
     Indication: TRANSPLANT REJECTION
     Dosage: SEE IMAGE
     Route: 042
     Dates: start: 20041005
  2. GAMUNEX [Suspect]
     Indication: TRANSPLANT REJECTION
     Dosage: SEE IMAGE
     Route: 042
     Dates: start: 20041005
  3. GAMUNEX [Suspect]
     Indication: TRANSPLANT REJECTION
     Dosage: SEE IMAGE
     Route: 042
     Dates: start: 20041006
  4. GAMUNEX [Suspect]
     Indication: TRANSPLANT REJECTION
     Dosage: SEE IMAGE
     Route: 042
     Dates: start: 20041008
  5. GAMUNEX [Suspect]
     Indication: TRANSPLANT REJECTION
     Dosage: SEE IMAGE
     Route: 042
     Dates: start: 20041010
  6. GAMUNEX [Suspect]
     Indication: TRANSPLANT REJECTION
     Dosage: SEE IMAGE
     Route: 042
     Dates: start: 20051007
  7. GAMUNEX [Suspect]
  8. GAMUNEX [Suspect]
  9. GAMUNEX [Suspect]
  10. GAMUNEX [Suspect]
  11. GAMUNEX [Suspect]
  12. CYCLOSPORINE [Concomitant]
  13. LOPRESSOR [Concomitant]
  14. CELLCEPT [Concomitant]
  15. NIFEDIPINE [Concomitant]
  16. PREDNISONE [Concomitant]
  17. VALTREX [Concomitant]
  18. ARANESP [Concomitant]

REACTIONS (6)
  - BLOOD BILIRUBIN INCREASED [None]
  - BLOOD LACTATE DEHYDROGENASE DECREASED [None]
  - HAEMOGLOBIN DECREASED [None]
  - HAEMOLYSIS [None]
  - HAPTOGLOBIN DECREASED [None]
  - LABORATORY TEST ABNORMAL [None]
